FAERS Safety Report 10159517 (Version 1)
Quarter: 2014Q2

REPORT INFORMATION
  Report Type: Spontaneous
  Country: US (occurrence: US)
  Receive Date: 20140508
  Receipt Date: 20140508
  Transmission Date: 20141212
  Serious: No
  Sender: FDA-Public Use
  Company Number: US-BAYER-2014-060687

PATIENT
  Age: 23 Year
  Sex: Female

DRUGS (1)
  1. YASMIN [Suspect]
     Indication: ACNE
     Dosage: UNK
     Route: 048
     Dates: start: 20140419

REACTIONS (2)
  - Acne [None]
  - Off label use [None]
